FAERS Safety Report 20224461 (Version 1)
Quarter: 2021Q4

REPORT INFORMATION
  Report Type: Spontaneous
  Country: US (occurrence: None)
  Receive Date: 20211223
  Receipt Date: 20211223
  Transmission Date: 20220304
  Serious: Yes (Hospitalization)
  Sender: FDA-Public Use
  Company Number: None

PATIENT
  Age: 83 Year
  Sex: Female
  Weight: 59.4 kg

DRUGS (10)
  1. TEMOZOLOMIDE [Suspect]
     Active Substance: TEMOZOLOMIDE
     Indication: Brain neoplasm malignant
     Dosage: FREQUENCY : DAILY;?
     Route: 048
     Dates: start: 20211130
  2. ONDANSETRON [Suspect]
     Active Substance: ONDANSETRON
     Indication: Brain neoplasm malignant
     Dosage: FREQUENCY : AS NEEDED;?
     Route: 060
     Dates: start: 20211130
  3. ONDANSETRON [Suspect]
     Active Substance: ONDANSETRON
     Indication: Nausea
  4. ONDANSETRON [Suspect]
     Active Substance: ONDANSETRON
     Indication: Vomiting
  5. LISINOPRIL [Concomitant]
     Active Substance: LISINOPRIL
  6. SODIUM CHLORIDE [Concomitant]
     Active Substance: SODIUM CHLORIDE
  7. Symbicort 160-4.5mg [Concomitant]
  8. Decadron 4mg [Concomitant]
  9. VASCEPA [Concomitant]
     Active Substance: ICOSAPENT ETHYL
  10. ELIQUIS [Concomitant]
     Active Substance: APIXABAN

REACTIONS (1)
  - Hospitalisation [None]

NARRATIVE: CASE EVENT DATE: 20211223
